FAERS Safety Report 20206196 (Version 1)
Quarter: 2021Q4

REPORT INFORMATION
  Report Type: Spontaneous
  Country: US (occurrence: None)
  Receive Date: 20211218
  Receipt Date: 20211218
  Transmission Date: 20220304
  Serious: Yes (Disabling, Other)
  Sender: FDA-Public Use
  Company Number: None

PATIENT
  Age: 61 Year
  Sex: Male
  Weight: 99 kg

DRUGS (1)
  1. REGEN-COV [Suspect]
     Active Substance: CASIRIVIMAB\IMDEVIMAB
     Indication: COVID-19
     Route: 042
     Dates: start: 20211207, end: 20211207

REACTIONS (5)
  - Respiratory tract congestion [None]
  - Dyspnoea [None]
  - Condition aggravated [None]
  - Vertigo [None]
  - Impaired work ability [None]

NARRATIVE: CASE EVENT DATE: 20211207
